FAERS Safety Report 7417190-9 (Version None)
Quarter: 2011Q2

REPORT INFORMATION
  Report Type: 
  Country: None (occurrence: None)
  Receive Date: 20110407
  Receipt Date: 20110329
  Transmission Date: 20111010
  Serious: Yes (Other)
  Sender: FDA-Public Use
  Company Number: FK201100612

PATIENT
  Age: 68 Year
  Sex: Male

DRUGS (1)
  1. FLUOROURACIL [Suspect]
     Indication: PRODUCT USED FOR UNKNOWN INDICATION
     Dosage: 5 MG, SUBCONJUNCTIVAL
     Route: 057

REACTIONS (6)
  - GRAND MAL CONVULSION [None]
  - POSTICTAL STATE [None]
  - OFF LABEL USE [None]
  - ELECTROENCEPHALOGRAM ABNORMAL [None]
  - CONVULSION [None]
  - AMNESIA [None]
